FAERS Safety Report 15331702 (Version 1)
Quarter: 2018Q3

REPORT INFORMATION
  Report Type: Spontaneous
  Country: NL (occurrence: NL)
  Receive Date: 20180829
  Receipt Date: 20180829
  Transmission Date: 20181010
  Serious: Yes (Other)
  Sender: FDA-Public Use
  Company Number: NL-TEVA-2018-NL-949636

PATIENT
  Age: 82 Year
  Sex: Male
  Weight: 98 kg

DRUGS (5)
  1. ASCAL BRISPER CARDIO?NEURO [Concomitant]
     Active Substance: ASPIRIN\CARBASPIRIN CALCIUM
     Route: 065
  2. COVEREX?AS 5MG. [Concomitant]
     Route: 065
  3. SPIRONOLACTON [Suspect]
     Active Substance: SPIRONOLACTONE
     Indication: CARDIAC DISORDER
     Dosage: 1 DOSAGE FORMS DAILY; 1 PCS PERDAG
     Route: 065
     Dates: start: 20180710, end: 20180730
  4. ADALAT OROS TABLET MGA 60MG [Concomitant]
     Route: 065
  5. FUROSEMIDE TABLET 40MG [Concomitant]
     Active Substance: FUROSEMIDE
     Route: 065

REACTIONS (2)
  - Monoplegia [Recovered/Resolved]
  - Monoplegia [Recovered/Resolved]

NARRATIVE: CASE EVENT DATE: 20180717
